FAERS Safety Report 18224873 (Version 3)
Quarter: 2020Q4

REPORT INFORMATION
  Report Type: Spontaneous
  Country: US (occurrence: US)
  Receive Date: 20200903
  Receipt Date: 20201008
  Transmission Date: 20210113
  Serious: Yes (Other)
  Sender: FDA-Public Use
  Company Number: US-ROCHE-2669690

PATIENT
  Sex: Male

DRUGS (2)
  1. ESBRIET [Suspect]
     Active Substance: PIRFENIDONE
     Indication: IDIOPATHIC PULMONARY FIBROSIS
     Dosage: 3 TABLET 2 TIMES A DAY
     Route: 048
     Dates: start: 20200412, end: 202007
  2. ESBRIET [Suspect]
     Active Substance: PIRFENIDONE
     Indication: IDIOPATHIC PULMONARY FIBROSIS
     Dosage: 3 PILLS 2 TIMES A DAY
     Route: 048
     Dates: start: 20200317

REACTIONS (6)
  - Intentional product misuse [Unknown]
  - Fall [Unknown]
  - Ankle fracture [Unknown]
  - Arthralgia [Unknown]
  - Off label use [Unknown]
  - Gait disturbance [Unknown]
